FAERS Safety Report 7044492-0 (Version None)
Quarter: 2010Q4

REPORT INFORMATION
  Report Type: 
  Country: None (occurrence: None)
  Receive Date: 20101014
  Receipt Date: 20100811
  Transmission Date: 20110411
  Serious: Yes (Disabling, Other)
  Sender: FDA-Public Use
  Company Number: JP-ASTRAZENECA-2010SE47220

PATIENT
  Age: 86 Year
  Sex: Female

DRUGS (2)
  1. OMEPRAZON [Suspect]
     Indication: DYSPEPSIA
     Route: 048
  2. OMEPRAZON [Suspect]
     Route: 048

REACTIONS (1)
  - HEARING IMPAIRED [None]
